FAERS Safety Report 5273845-6 (Version None)
Quarter: 2007Q1

REPORT INFORMATION
  Report Type: 
  Country: None (occurrence: None)
  Receive Date: 20070323
  Receipt Date: 20070308
  Transmission Date: 20070707
  Serious: Yes (Other)
  Sender: FDA-Public Use
  Company Number: HQWYE618114MAR07

PATIENT
  Sex: Female
  Weight: 16 kg

DRUGS (2)
  1. ENBREL [Suspect]
     Indication: JUVENILE ARTHRITIS
     Route: 058
     Dates: start: 20070301
  2. ENBREL [Suspect]
     Route: 058
     Dates: start: 20070301

REACTIONS (1)
  - DRUG INEFFECTIVE [None]
